FAERS Safety Report 8554525-8 (Version None)
Quarter: 2012Q3

REPORT INFORMATION
  Report Type: 
  Country: None (occurrence: None)
  Receive Date: 20120731
  Receipt Date: 20120724
  Transmission Date: 20120928
  Serious: No
  Sender: FDA-Public Use
  Company Number: US-B.I. PHARMACEUTICALS,INC./RIDGEFIELD-2012-BP-16460BP

PATIENT
  Sex: Female
  Weight: 61 kg

DRUGS (9)
  1. SPIRIVA [Suspect]
     Indication: CHRONIC OBSTRUCTIVE PULMONARY DISEASE
     Dosage: 18 MCG
     Route: 055
     Dates: start: 20120717
  2. XARELTO [Concomitant]
     Indication: COAGULOPATHY
     Dosage: 20 MG
     Route: 048
     Dates: start: 20120601
  3. LASIX [Concomitant]
     Indication: FLUID RETENTION
     Dosage: 40 MG
     Route: 048
     Dates: start: 20020101
  4. SPIRIVA [Suspect]
     Dosage: 18 MCG
     Route: 048
     Dates: start: 20120724, end: 20120724
  5. EVISTA [Concomitant]
     Indication: BONE DISORDER
     Dosage: 60 MG
     Route: 048
     Dates: start: 20000101
  6. METOPROLOL TARTRATE [Concomitant]
     Indication: ATRIAL FIBRILLATION
     Dosage: 100 MG
     Route: 048
     Dates: start: 20070101
  7. PROVENTIL GENTLEHALER [Concomitant]
     Indication: DYSPNOEA
     Route: 055
     Dates: start: 20020101
  8. FEXOFENADINE [Concomitant]
     Indication: HYPERSENSITIVITY
     Dosage: 180 MG
     Route: 048
     Dates: start: 20020101
  9. REQUIP [Concomitant]
     Indication: RESTLESS LEGS SYNDROME
     Route: 048
     Dates: start: 20060101

REACTIONS (1)
  - INCORRECT ROUTE OF DRUG ADMINISTRATION [None]
